FAERS Safety Report 9913312 (Version 1)
Quarter: 2014Q1

REPORT INFORMATION
  Report Type: Spontaneous
  Country: US (occurrence: US)
  Receive Date: 20140220
  Receipt Date: 20140220
  Transmission Date: 20141002
  Serious: Yes (Hospitalization)
  Sender: FDA-Public Use
  Company Number: US-MYLANLABS-2014S1003053

PATIENT
  Age: 78 Year
  Sex: Male

DRUGS (5)
  1. AMIODARONE [Suspect]
     Indication: ATRIAL FIBRILLATION
     Route: 065
  2. METOPROLOL [Concomitant]
     Route: 065
  3. SIMVASTATIN [Concomitant]
     Route: 065
  4. OMEPRAZOLE [Concomitant]
     Route: 065
  5. TAMSULOSIN [Concomitant]
     Route: 065

REACTIONS (3)
  - Myxoedema coma [Recovering/Resolving]
  - Cardiac arrest [Recovered/Resolved]
  - Hyporeflexia [Unknown]
